FAERS Safety Report 6316561-1 (Version None)
Quarter: 2009Q3

REPORT INFORMATION
  Report Type: 
  Country: None (occurrence: None)
  Receive Date: 20090820
  Receipt Date: 20090810
  Transmission Date: 20100115
  Serious: Yes (Other)
  Sender: FDA-Public Use
  Company Number: PHEH2009US09269

PATIENT
  Sex: Male

DRUGS (8)
  1. TASIGNA [Suspect]
     Indication: CHRONIC MYELOID LEUKAEMIA
     Dosage: 400 MG, Q12H
     Route: 048
     Dates: start: 20090401
  2. DILANTIN [Concomitant]
  3. BENICAR [Concomitant]
  4. CRESTOR [Concomitant]
  5. SIMVASTATIN [Concomitant]
  6. LEVOTHYROXINE [Concomitant]
  7. TOPAMAX [Concomitant]
  8. PANTOPRAZOLE SODIUM [Concomitant]

REACTIONS (1)
  - MEDICATION ERROR [None]
